FAERS Safety Report 17889887 (Version 1)
Quarter: 2020Q2

REPORT INFORMATION
  Report Type: Spontaneous
  Country: US (occurrence: US)
  Receive Date: 20200612
  Receipt Date: 20200612
  Transmission Date: 20200714
  Serious: Yes (Hospitalization, Other)
  Sender: FDA-Public Use
  Company Number: US-AMNEAL PHARMACEUTICALS-2020-AMRX-01626

PATIENT
  Sex: Male

DRUGS (2)
  1. RYTARY [Suspect]
     Active Substance: CARBIDOPA\LEVODOPA
     Indication: PRODUCT USED FOR UNKNOWN INDICATION
     Dosage: 13 CAPSULES, DAILY (3 CAPS, FOUR TIMES A DAY AND 1 CAP AT 2AM)
     Route: 048
     Dates: end: 20200303
  2. RYTARY [Suspect]
     Active Substance: CARBIDOPA\LEVODOPA
     Dosage: 3 CAPSULES, 5X/DAY
     Route: 048
     Dates: start: 20200401

REACTIONS (3)
  - Fall [Unknown]
  - Prescribed overdose [Unknown]
  - Joint injury [Unknown]

NARRATIVE: CASE EVENT DATE: 2020
